FAERS Safety Report 23711529 (Version 1)
Quarter: 2024Q2

REPORT INFORMATION
  Report Type: Spontaneous
  Country: US (occurrence: None)
  Receive Date: 20240404
  Receipt Date: 20240404
  Transmission Date: 20240716
  Serious: Yes (Hospitalization)
  Sender: FDA-Public Use
  Company Number: None

PATIENT
  Age: 3 Year
  Sex: Male

DRUGS (1)
  1. EPIDIOLEX [Suspect]
     Active Substance: CANNABIDIOL
     Indication: Severe myoclonic epilepsy of infancy
     Dosage: 100MG QD ORAL?
     Route: 048
     Dates: start: 20220503

REACTIONS (3)
  - Seizure [None]
  - Head injury [None]
  - Fall [None]

NARRATIVE: CASE EVENT DATE: 20240304
